FAERS Safety Report 5429258-7 (Version None)
Quarter: 2007Q3

REPORT INFORMATION
  Report Type: 
  Country: None (occurrence: None)
  Receive Date: 20070829
  Receipt Date: 20070824
  Transmission Date: 20080115
  Serious: Yes (Hospitalization)
  Sender: FDA-Public Use
  Company Number: US-AVENTIS-200716076US

PATIENT
  Age: 74 Year
  Sex: Male

DRUGS (2)
  1. LOVENOX [Suspect]
     Route: 058
     Dates: start: 20070615
  2. SEVERAL MEDS [Concomitant]
     Dosage: DOSE: UNK

REACTIONS (4)
  - ESCHERICHIA INFECTION [None]
  - HAEMATOMA [None]
  - STAPHYLOCOCCAL INFECTION [None]
  - WOUND SECRETION [None]
